FAERS Safety Report 5249132-9 (Version None)
Quarter: 2007Q1

REPORT INFORMATION
  Report Type: 
  Country: None (occurrence: None)
  Receive Date: 20070228
  Receipt Date: 20070220
  Transmission Date: 20070707
  Serious: Yes (Death, Hospitalization)
  Sender: FDA-Public Use
  Company Number: GB-AVENTIS-200710892EU

PATIENT
  Age: 0 Year
  Sex: Female

DRUGS (4)
  1. FUROSEMIDE [Suspect]
     Dosage: DOSE: 5MG/5ML; ROUTE: NASOGASTRIC
     Route: 050
  2. FUROSEMIDE [Suspect]
     Dosage: DOSE: 5MG/5ML; ROUTE: NASOGASTRIC
     Route: 050
  3. FUROSEMIDE [Suspect]
     Dosage: DOSE: 50MG/5ML; ROUTE: NASOGASTRIC
     Route: 050
     Dates: start: 20060315
  4. SPIRONOLACTONE [Concomitant]
     Dosage: DOSE: 5MG/5ML; ROUTE: NASOGASTRIC
     Route: 050

REACTIONS (5)
  - CONVULSION [None]
  - DRUG TOXICITY [None]
  - HYPOVOLAEMIA [None]
  - HYPOXIC ENCEPHALOPATHY [None]
  - OVERDOSE [None]
